FAERS Safety Report 6998821-4 (Version None)
Quarter: 2010Q3

REPORT INFORMATION
  Report Type: 
  Country: None (occurrence: None)
  Receive Date: 20100920
  Receipt Date: 20100301
  Transmission Date: 20110219
  Serious: No
  Sender: FDA-Public Use
  Company Number: US-ASTRAZENECA-2006UW05168

PATIENT
  Age: 631 Month
  Sex: Female
  Weight: 102.1 kg

DRUGS (18)
  1. SEROQUEL [Suspect]
     Indication: BIPOLAR DISORDER
     Dosage: 25-50 MG
     Route: 048
     Dates: start: 20040601, end: 20050801
  2. SEROQUEL [Suspect]
     Indication: BIPOLAR I DISORDER
     Dosage: 25-50 MG
     Route: 048
     Dates: start: 20040601, end: 20050801
  3. SEROQUEL [Suspect]
     Indication: INSOMNIA
     Dosage: 25-50 MG
     Route: 048
     Dates: start: 20040601, end: 20050801
  4. SEROQUEL [Suspect]
     Indication: ANXIETY
     Dosage: 25-50 MG
     Route: 048
     Dates: start: 20040601, end: 20050801
  5. SEROQUEL [Suspect]
     Dosage: 25-50 MG
     Route: 048
     Dates: start: 20040707
  6. SEROQUEL [Suspect]
     Dosage: 25-50 MG
     Route: 048
     Dates: start: 20040707
  7. SEROQUEL [Suspect]
     Dosage: 25-50 MG
     Route: 048
     Dates: start: 20040707
  8. SEROQUEL [Suspect]
     Dosage: 25-50 MG
     Route: 048
     Dates: start: 20040707
  9. RISPERDAL [Suspect]
     Indication: BIPOLAR DISORDER
     Dosage: 1 MG BID 2 MG AT BEDTIME
     Route: 048
     Dates: start: 20050729
  10. RISPERDAL [Suspect]
     Dates: start: 20050701, end: 20050801
  11. LITHOBID [Concomitant]
     Indication: BIPOLAR DISORDER
     Dosage: 100-1200 MG
     Route: 048
     Dates: start: 19810101
  12. LITHOBID [Concomitant]
     Indication: BIPOLAR I DISORDER
     Dosage: 100-1200 MG
     Route: 048
     Dates: start: 19810101
  13. LISINOPRIL [Concomitant]
     Dosage: 20-40 MG
     Route: 048
     Dates: start: 20051208
  14. HALDOL [Concomitant]
     Indication: BIPOLAR DISORDER
     Dosage: 4-6 MG
     Route: 048
     Dates: start: 19810101, end: 20050801
  15. HALDOL [Concomitant]
     Indication: BIPOLAR I DISORDER
     Dosage: 4-6 MG
     Route: 048
     Dates: start: 19810101, end: 20050801
  16. HALDOL [Concomitant]
     Dates: start: 19830101
  17. HALDOL [Concomitant]
     Dates: start: 19830101
  18. DEPAKOTE [Concomitant]
     Dates: start: 20090101

REACTIONS (5)
  - BLOOD GLUCOSE INCREASED [None]
  - DIABETES MELLITUS [None]
  - MICROALBUMINURIA [None]
  - RENAL DISORDER [None]
  - TYPE 2 DIABETES MELLITUS [None]
